FAERS Safety Report 9571326 (Version 1)
Quarter: 2013Q4

REPORT INFORMATION
  Report Type: Report from Study
  Country: US (occurrence: US)
  Receive Date: 20131001
  Receipt Date: 20131001
  Transmission Date: 20140711
  Serious: Yes (Hospitalization, Other)
  Sender: FDA-Public Use
  Company Number: US-ALEXION PHARMACEUTICALS INC.-A201202639

PATIENT
  Sex: Female

DRUGS (1)
  1. SOLIRIS [Suspect]
     Indication: HAEMOLYTIC URAEMIC SYNDROME
     Dosage: UNK
     Route: 042

REACTIONS (5)
  - HELLP syndrome [Recovering/Resolving]
  - Abortion induced [Unknown]
  - Unevaluable event [Not Recovered/Not Resolved]
  - Exposure during pregnancy [Unknown]
  - Blood creatinine increased [Unknown]
